FAERS Safety Report 14934908 (Version 1)
Quarter: 2018Q2

REPORT INFORMATION
  Report Type: Report from Study
  Country: US (occurrence: US)
  Receive Date: 20180524
  Receipt Date: 20180524
  Transmission Date: 20180711
  Serious: Yes (Other)
  Sender: FDA-Public Use
  Company Number: PHEH2018US019342

PATIENT
  Sex: Male

DRUGS (1)
  1. GLEEVEC [Suspect]
     Active Substance: IMATINIB MESYLATE
     Indication: PRODUCT USED FOR UNKNOWN INDICATION
     Route: 065

REACTIONS (6)
  - Hypoacusis [Unknown]
  - Diarrhoea [Unknown]
  - Periorbital oedema [Unknown]
  - Drug ineffective [Not Recovered/Not Resolved]
  - Gastrointestinal stromal tumour [Unknown]
  - Joint swelling [Unknown]
